FAERS Safety Report 16719863 (Version 1)
Quarter: 2019Q3

REPORT INFORMATION
  Report Type: Spontaneous
  Country: US (occurrence: US)
  Receive Date: 20190820
  Receipt Date: 20190820
  Transmission Date: 20191005
  Serious: No
  Sender: FDA-Public Use
  Company Number: US-PFIZER INC-2019354083

PATIENT
  Age: 52 Year
  Sex: Female

DRUGS (9)
  1. LORATADINE. [Concomitant]
     Active Substance: LORATADINE
     Dosage: UNK
  2. METFORMIN HCL [Concomitant]
     Active Substance: METFORMIN HYDROCHLORIDE
     Dosage: UNK
  3. MELATONIN [Concomitant]
     Active Substance: MELATONIN
     Dosage: UNK
  4. HYDROCHLOROTHIAZIDE. [Concomitant]
     Active Substance: HYDROCHLOROTHIAZIDE
     Dosage: UNK
  5. SOMAVERT [Suspect]
     Active Substance: PEGVISOMANT
     Indication: ACROMEGALY
     Dosage: 30 MG, 1X/DAY
     Dates: start: 20190409
  6. OMEPRAZOLE. [Concomitant]
     Active Substance: OMEPRAZOLE
     Dosage: UNK
  7. MOTRIN [Concomitant]
     Active Substance: IBUPROFEN
     Dosage: UNK
  8. SIMVASTATIN. [Concomitant]
     Active Substance: SIMVASTATIN
     Dosage: UNK
  9. SOMAVERT [Suspect]
     Active Substance: PEGVISOMANT
     Indication: PITUITARY ENLARGEMENT

REACTIONS (3)
  - Muscle fatigue [Unknown]
  - Drug ineffective [Unknown]
  - Upper respiratory tract infection [Unknown]
